FAERS Safety Report 4714491-X (Version None)
Quarter: 2005Q3

REPORT INFORMATION
  Report Type: 
  Country: None (occurrence: None)
  Receive Date: 20050714
  Receipt Date: 20050708
  Transmission Date: 20060218
  Serious: Yes (Other)
  Sender: FDA-Public Use
  Company Number: PHBS2005JP09752

PATIENT
  Age: 74 Year
  Sex: Female

DRUGS (4)
  1. STARSIS [Suspect]
     Indication: DIABETES MELLITUS
     Dosage: 270 MG/DAY
     Route: 048
     Dates: start: 20050601, end: 20050630
  2. NU-LOTAN [Concomitant]
     Dosage: 25 MG/DAY
     Dates: start: 20050301
  3. CIBENOL [Concomitant]
     Dosage: 200 MG/DAY
     Dates: start: 20050301
  4. MONTELUKAST SODIUM [Suspect]
     Dosage: 10 MG/DAY
     Dates: start: 20050603

REACTIONS (2)
  - ALANINE AMINOTRANSFERASE INCREASED [None]
  - HEPATIC FUNCTION ABNORMAL [None]
